FAERS Safety Report 21984626 (Version 4)
Quarter: 2023Q2

REPORT INFORMATION
  Report Type: Other
  Country: US (occurrence: US)
  Receive Date: 20230213
  Receipt Date: 20230531
  Transmission Date: 20230721
  Serious: Yes (Death)
  Sender: FDA-Public Use
  Company Number: US-BoehringerIngelheim-2023-BI-217307

PATIENT
  Age: 65 Year
  Sex: Female

DRUGS (2)
  1. ALTEPLASE [Suspect]
     Active Substance: ALTEPLASE
     Indication: Cerebrovascular accident
     Dosage: ADMINISTRATION OF AN 8-MG T-PA BOLUS. (65.7 MG OF THE TOTAL DOSE OF 76 MG HAD BEEN ADMINISTERED)
     Route: 040
  2. LECANEMAB [Concomitant]
     Active Substance: LECANEMAB
     Indication: Cerebrovascular accident

REACTIONS (3)
  - Hypertension [Unknown]
  - Cerebral haemorrhage [Fatal]
  - Vasculitis necrotising [Fatal]
